FAERS Safety Report 12897081 (Version 1)
Quarter: 2016Q4

REPORT INFORMATION
  Report Type: Spontaneous
  Country: US (occurrence: US)
  Receive Date: 20161028
  Receipt Date: 20161028
  Transmission Date: 20170207
  Serious: Yes (Other)
  Sender: FDA-Public Use
  Company Number: None

PATIENT
  Age: 54 Year
  Sex: Male
  Weight: 83.25 kg

DRUGS (1)
  1. LAMOTRIGINE. [Suspect]
     Active Substance: LAMOTRIGINE
     Route: 048
     Dates: start: 20161014, end: 20161023

REACTIONS (4)
  - Fatigue [None]
  - Influenza like illness [None]
  - Malaise [None]
  - Rash [None]

NARRATIVE: CASE EVENT DATE: 20161028
